FAERS Safety Report 14711795 (Version 1)
Quarter: 2018Q2

REPORT INFORMATION
  Report Type: Spontaneous
  Country: GB (occurrence: GB)
  Receive Date: 20180403
  Receipt Date: 20180403
  Transmission Date: 20180711
  Serious: Yes (Other)
  Sender: FDA-Public Use
  Company Number: GB-TEVA-2018-GB-877882

PATIENT
  Age: 40 Year
  Sex: Male
  Weight: 77 kg

DRUGS (11)
  1. CO-AMOXICLAV [Concomitant]
     Active Substance: AMOXICILLIN\CLAVULANIC ACID
     Dosage: 3 DOSAGE FORMS DAILY; 500MG/125MG
     Route: 065
     Dates: start: 20180206
  2. CIPROFLOXACIN. [Concomitant]
     Active Substance: CIPROFLOXACIN
     Dosage: 1000 MILLIGRAM DAILY;
     Route: 065
     Dates: start: 20180125
  3. NAPROXEN. [Concomitant]
     Active Substance: NAPROXEN
     Dosage: 500 MILLIGRAM DAILY;
     Route: 065
     Dates: start: 20180119
  4. NAPROXEN. [Concomitant]
     Active Substance: NAPROXEN
     Dosage: 1000 MILLIGRAM DAILY; WITH MEALS
     Route: 065
     Dates: start: 20171215
  5. OTOMIZE [Concomitant]
     Active Substance: DEXAMETHASONE\NEOMYCIN SULFATE
     Dosage: 3 DOSAGE FORMS DAILY;
     Route: 065
     Dates: start: 20171123
  6. MORPHINE [Concomitant]
     Active Substance: MORPHINE
     Dosage: 20 MILLIGRAM DAILY;
     Route: 065
     Dates: start: 20180125
  7. AMITRIPTYLINE [Concomitant]
     Active Substance: AMITRIPTYLINE
     Dosage: 1-2 AT NIGHT
     Route: 065
     Dates: start: 20171215
  8. COSMOCOL [Concomitant]
     Dosage: 1- 3 SACHETS DAILY IN DIVIDED DOSES
     Route: 065
     Dates: start: 20171215
  9. GABAPENTIN. [Suspect]
     Active Substance: GABAPENTIN
     Route: 065
  10. NYSTAN [Concomitant]
     Active Substance: NYSTATIN
     Dosage: 4 ML DAILY; DROPPED INTO THE MOUTH
     Route: 048
     Dates: start: 20180105
  11. COCODAMOL [Concomitant]
     Active Substance: ACETAMINOPHEN\CODEINE PHOSPHATE
     Dosage: 30MG/500MG 1-2 UP TO FOUR TIMES DAILY
     Route: 065
     Dates: start: 20171215

REACTIONS (3)
  - Depression suicidal [Recovered/Resolved]
  - Aggression [Recovered/Resolved]
  - Depressive symptom [Recovered/Resolved]

NARRATIVE: CASE EVENT DATE: 20180111
